FAERS Safety Report 14692585 (Version 3)
Quarter: 2018Q2

REPORT INFORMATION
  Report Type: Report from Study
  Country: None (occurrence: GB)
  Receive Date: 20180329
  Receipt Date: 20180528
  Transmission Date: 20180711
  Serious: Yes (Other)
  Sender: FDA-Public Use
  Company Number: GB-ABBVIE-18K-167-2300442-00

PATIENT
  Sex: Male

DRUGS (1)
  1. HUMIRA [Suspect]
     Active Substance: ADALIMUMAB
     Indication: CROHN^S DISEASE
     Route: 058
     Dates: start: 2016, end: 20180307

REACTIONS (6)
  - Neck mass [Unknown]
  - Rash pruritic [Unknown]
  - Crohn^s disease [Unknown]
  - Skin exfoliation [Recovered/Resolved]
  - Fatigue [Unknown]
  - Rash erythematous [Unknown]

NARRATIVE: CASE EVENT DATE: 2018
